FAERS Safety Report 6604824-1 (Version None)
Quarter: 2010Q1

REPORT INFORMATION
  Report Type: 
  Country: None (occurrence: None)
  Receive Date: 20100226
  Receipt Date: 20100216
  Transmission Date: 20100710
  Serious: Yes (Other)
  Sender: FDA-Public Use
  Company Number: US-JNJFOC-20100210371

PATIENT
  Sex: Male

DRUGS (2)
  1. TYLENOL (CAPLET) [Suspect]
  2. TYLENOL (CAPLET) [Suspect]
     Indication: ACCIDENTAL EXPOSURE

REACTIONS (3)
  - ACCIDENTAL EXPOSURE [None]
  - RASH [None]
  - WHITE BLOOD CELL DISORDER [None]
